FAERS Safety Report 9154230 (Version 1)
Quarter: 2013Q1

REPORT INFORMATION
  Report Type: Spontaneous
  Country: US (occurrence: US)
  Receive Date: 20130311
  Receipt Date: 20130311
  Transmission Date: 20140127
  Serious: Yes (Disabling)
  Sender: FDA-Public Use
  Company Number: US-009507513-1303USA003626

PATIENT
  Sex: Female
  Weight: 95.24 kg

DRUGS (2)
  1. IMPLANON [Suspect]
     Indication: CONTRACEPTION
     Dosage: UNK, FREQUENCY: 3 YEARS
     Route: 059
     Dates: start: 20121121
  2. PENTASA [Concomitant]

REACTIONS (2)
  - Arthralgia [Recovering/Resolving]
  - Metrorrhagia [Recovering/Resolving]
